FAERS Safety Report 6722486-X (Version None)
Quarter: 2010Q2

REPORT INFORMATION
  Report Type: 
  Country: None (occurrence: None)
  Receive Date: 20100512
  Receipt Date: 20100503
  Transmission Date: 20101027
  Serious: Yes (Disabling, Other)
  Sender: FDA-Public Use
  Company Number: CA-JNJFOC-20100502835

PATIENT

DRUGS (1)
  1. RISPERDAL CONSTA [Suspect]
     Indication: ACCIDENTAL EXPOSURE
     Route: 050

REACTIONS (6)
  - ACCIDENTAL EXPOSURE [None]
  - DEVICE LEAKAGE [None]
  - DEVICE MALFUNCTION [None]
  - EYE IRRITATION [None]
  - SKIN BURNING SENSATION [None]
  - VISUAL ACUITY REDUCED [None]
